FAERS Safety Report 17008365 (Version 1)
Quarter: 2019Q4

REPORT INFORMATION
  Report Type: Report from Study
  Country: US (occurrence: US)
  Receive Date: 20191108
  Receipt Date: 20191108
  Transmission Date: 20200122
  Serious: Yes (Hospitalization)
  Sender: FDA-Public Use
  Company Number: US-TEVA-2019-US-1132788

PATIENT
  Age: 52 Year
  Sex: Male

DRUGS (1)
  1. COPAXONE [Suspect]
     Active Substance: GLATIRAMER ACETATE
     Dosage: LAST DOSE ADMINISTERED :28-OCT-2019
     Dates: start: 20191019

REACTIONS (4)
  - Respiration abnormal [Unknown]
  - Immediate post-injection reaction [Unknown]
  - Hypoaesthesia [Unknown]
  - Chills [Unknown]

NARRATIVE: CASE EVENT DATE: 20191025
